FAERS Safety Report 11174687 (Version 1)
Quarter: 2015Q2

REPORT INFORMATION
  Report Type: Spontaneous
  Country: US (occurrence: None)
  Receive Date: 20150608
  Receipt Date: 20150608
  Transmission Date: 20150821
  Serious: Yes (Hospitalization)
  Sender: FDA-Public Use
  Company Number: None

PATIENT
  Age: 82 Year
  Sex: Male
  Weight: 49.4 kg

DRUGS (1)
  1. CIPROFLOXACIN. [Suspect]
     Active Substance: CIPROFLOXACIN
     Indication: URINARY TRACT INFECTION
     Route: 048
     Dates: start: 20150529, end: 20150601

REACTIONS (7)
  - Transient ischaemic attack [None]
  - Adverse drug reaction [None]
  - Mental status changes [None]
  - Dehydration [None]
  - Confusional state [None]
  - Dysarthria [None]
  - Encephalopathy [None]

NARRATIVE: CASE EVENT DATE: 20150530
